FAERS Safety Report 8262802-3 (Version None)
Quarter: 2012Q2

REPORT INFORMATION
  Report Type: 
  Country: None (occurrence: None)
  Receive Date: 20120405
  Receipt Date: 20120329
  Transmission Date: 20120825
  Serious: Yes (Hospitalization)
  Sender: FDA-Public Use
  Company Number: US-BAYER-2012-031667

PATIENT
  Age: 20 Year
  Sex: Female
  Weight: 46.3 kg

DRUGS (3)
  1. TYLENOL [Concomitant]
     Dosage: UNK
     Dates: start: 20070301
  2. YAZ [Suspect]
     Dosage: UNK
     Dates: start: 20070301
  3. PERCOCET [Concomitant]
     Dosage: UNK
     Dates: start: 20070301

REACTIONS (2)
  - PULMONARY EMBOLISM [None]
  - PELVIC VENOUS THROMBOSIS [None]
